FAERS Safety Report 8769938 (Version 4)
Quarter: 2013Q2

REPORT INFORMATION
  Report Type: Spontaneous
  Country: BR (occurrence: BR)
  Receive Date: 20120905
  Receipt Date: 20130528
  Transmission Date: 20140414
  Serious: Yes (Other)
  Sender: FDA-Public Use
  Company Number: BR-BAYER-2012-089377

PATIENT
  Age: 27 Year
  Sex: Female
  Weight: 60 kg

DRUGS (3)
  1. MIRENA [Suspect]
     Indication: MENSTRUAL CYCLE MANAGEMENT
     Dosage: 20 MCG/24HR, CONT
     Route: 015
     Dates: start: 20111121, end: 201305
  2. MIRENA [Suspect]
     Indication: DYSMENORRHOEA
  3. ORPHENADRINE [Concomitant]
     Indication: HEADACHE
     Dosage: 1 DF, QD
     Route: 048
     Dates: start: 20120825, end: 20120826

REACTIONS (9)
  - Vaginal haemorrhage [Recovered/Resolved]
  - Immunodeficiency [Recovered/Resolved]
  - Stress [Recovered/Resolved]
  - Dysmenorrhoea [Not Recovered/Not Resolved]
  - Vaginal haemorrhage [Not Recovered/Not Resolved]
  - Device dislocation [Recovered/Resolved]
  - Off label use [None]
  - Medical device discomfort [Recovered/Resolved]
  - Complication of device removal [Recovered/Resolved]
